FAERS Safety Report 16651317 (Version 1)
Quarter: 2019Q3

REPORT INFORMATION
  Report Type: Spontaneous
  Country: US (occurrence: US)
  Receive Date: 20190731
  Receipt Date: 20190731
  Transmission Date: 20191004
  Serious: Yes (Other)
  Sender: FDA-Public Use
  Company Number: US-ACTELION-A-CH2019-193668

PATIENT
  Sex: Male

DRUGS (2)
  1. NITRIC OXIDE. [Concomitant]
     Active Substance: NITRIC OXIDE
  2. EPOPROSTENOL SODIUM. [Suspect]
     Active Substance: EPOPROSTENOL SODIUM
     Indication: PULMONARY ARTERY THROMBOSIS
     Route: 042

REACTIONS (7)
  - Stent placement [Unknown]
  - Vascular stent stenosis [Recovering/Resolving]
  - Pulmonary artery stenosis [Recovering/Resolving]
  - Aspiration pleural cavity [Unknown]
  - Catheterisation cardiac [Unknown]
  - Vasodilation procedure [Recovering/Resolving]
  - Drug ineffective for unapproved indication [Unknown]
